FAERS Safety Report 15677404 (Version 2)
Quarter: 2018Q4

REPORT INFORMATION
  Report Type: Report from Study
  Country: KR (occurrence: KR)
  Receive Date: 20181130
  Receipt Date: 20181206
  Transmission Date: 20190205
  Serious: Yes (Death, Hospitalization)
  Sender: FDA-Public Use
  Company Number: KR-PFIZER INC-2018495460

PATIENT
  Age: 58 Year
  Sex: Male
  Weight: 57 kg

DRUGS (12)
  1. AVELUMAB [Suspect]
     Active Substance: AVELUMAB
     Dosage: 605 MG, CYCLIC (ONCE IN EVERY TWO WEEKS)
     Route: 042
  2. OXALIPLATIN. [Suspect]
     Active Substance: OXALIPLATIN
     Dosage: 213.2  MG, CYCLIC (ONCE IN EVERY TWO WEEKS)
     Route: 042
  3. AVELUMAB [Suspect]
     Active Substance: AVELUMAB
     Indication: ADENOCARCINOMA GASTRIC
     Dosage: 605 MG, CYCLIC (ONCE IN EVERY TWO WEEKS)
     Route: 042
     Dates: start: 20161219
  4. CAPECITABINE. [Suspect]
     Active Substance: CAPECITABINE
     Indication: ADENOCARCINOMA GASTRIC
     Dosage: 1600 MG, UNK
     Route: 042
     Dates: start: 20160822
  5. AVELUMAB [Suspect]
     Active Substance: AVELUMAB
     Dosage: 583 MG, CYCLIC
     Route: 042
     Dates: end: 20170116
  6. OXALIPLATIN. [Suspect]
     Active Substance: OXALIPLATIN
     Indication: ADENOCARCINOMA GASTRIC
     Dosage: 213.2  MG, CYCLIC (ONCE IN EVERY TWO WEEKS)
     Route: 042
     Dates: start: 20160822
  7. CAPECITABINE. [Suspect]
     Active Substance: CAPECITABINE
     Dosage: 1750 MG, UNK
     Route: 042
     Dates: end: 20161127
  8. PACLITAXEL. [Suspect]
     Active Substance: PACLITAXEL
     Indication: ADENOCARCINOMA GASTRIC
     Dosage: 2ND LINE PACLITAXEL
     Dates: start: 20170215
  9. OXALIPLATIN. [Suspect]
     Active Substance: OXALIPLATIN
     Dosage: 217.1 MG, CYCLIC
     Route: 042
     Dates: end: 20161114
  10. OXALIPLATIN. [Suspect]
     Active Substance: OXALIPLATIN
     Dosage: 213.2  MG, CYCLIC (ONCE IN EVERY TWO WEEKS)
     Route: 042
  11. OXALIPLATIN. [Suspect]
     Active Substance: OXALIPLATIN
     Dosage: 213.2  MG, CYCLIC (ONCE IN EVERY TWO WEEKS)
     Route: 042
  12. XELODA [Suspect]
     Active Substance: CAPECITABINE
     Indication: ADENOCARCINOMA GASTRIC
     Dosage: 1600 MG, UNK
     Route: 042
     Dates: start: 20160822, end: 20161127

REACTIONS (1)
  - Neoplasm progression [Fatal]

NARRATIVE: CASE EVENT DATE: 20170217
